FAERS Safety Report 19862804 (Version 3)
Quarter: 2021Q4

REPORT INFORMATION
  Report Type: Spontaneous
  Country: US (occurrence: US)
  Receive Date: 20210921
  Receipt Date: 20211005
  Transmission Date: 20220303
  Serious: No
  Sender: FDA-Public Use
  Company Number: US-AMGEN-USASP2021142332

PATIENT
  Sex: Female

DRUGS (1)
  1. NEULASTA [Suspect]
     Active Substance: PEGFILGRASTIM
     Indication: Neutropenia
     Dosage: UNK
     Route: 065

REACTIONS (6)
  - Fatigue [Unknown]
  - Application site pain [Recovered/Resolved]
  - Wrong technique in product usage process [Unknown]
  - Device physical property issue [Unknown]
  - Incorrect disposal of product [Unknown]
  - Device use error [Unknown]

NARRATIVE: CASE EVENT DATE: 20210901
